FAERS Safety Report 11124054 (Version 1)
Quarter: 2015Q2

REPORT INFORMATION
  Report Type: Spontaneous
  Country: BR (occurrence: BR)
  Receive Date: 20150520
  Receipt Date: 20150520
  Transmission Date: 20150821
  Serious: Yes (Other)
  Sender: FDA-Public Use
  Company Number: BR-ACCORD-030693

PATIENT
  Age: 62 Year
  Sex: Female

DRUGS (1)
  1. ACCORD PACLITAXEL [Suspect]
     Active Substance: PACLITAXEL
     Indication: PRODUCT USED FOR UNKNOWN INDICATION

REACTIONS (7)
  - Hyperhidrosis [Unknown]
  - Dyspnoea [Unknown]
  - Cyanosis [Unknown]
  - Flushing [Unknown]
  - Vomiting [Unknown]
  - Nausea [Unknown]
  - Hypertension [Unknown]

NARRATIVE: CASE EVENT DATE: 20141209
